FAERS Safety Report 5333470-5 (Version None)
Quarter: 2007Q2

REPORT INFORMATION
  Report Type: 
  Country: None (occurrence: None)
  Receive Date: 20070522
  Receipt Date: 20070522
  Transmission Date: 20071010
  Serious: Yes (Other)
  Sender: FDA-Public Use
  Company Number: None

PATIENT
  Age: 34 Year
  Sex: Female
  Weight: 45.3597 kg

DRUGS (1)
  1. TOPAMAX [Suspect]
     Indication: MIGRAINE PROPHYLAXIS
     Dosage: 2 TABLETS TWICE A DAY PO
     Route: 048
     Dates: start: 20061128, end: 20070301

REACTIONS (6)
  - CONVULSION [None]
  - DRUG EFFECT INCREASED [None]
  - LOSS OF CONSCIOUSNESS [None]
  - MEMORY IMPAIRMENT [None]
  - VISUAL DISTURBANCE [None]
  - WEIGHT DECREASED [None]
